FAERS Safety Report 25259480 (Version 1)
Quarter: 2025Q2

REPORT INFORMATION
  Report Type: Report from Study
  Country: IN (occurrence: IN)
  Receive Date: 20250501
  Receipt Date: 20250501
  Transmission Date: 20250717
  Serious: Yes (Death)
  Sender: DAIICHI
  Company Number: IN-AstraZeneca-CH-00857323A

PATIENT
  Age: 44 Year
  Sex: Female
  Weight: 46 kg

DRUGS (1)
  1. ENHERTU [Suspect]
     Active Substance: FAM-TRASTUZUMAB DERUXTECAN-NXKI
     Indication: Breast cancer metastatic
     Dosage: 200 MG, ONCE EVERY 3 WK
     Route: 041

REACTIONS (4)
  - Mouth swelling [Fatal]
  - Swollen tongue [Fatal]
  - Stomatitis [Fatal]
  - Eating disorder [Fatal]

NARRATIVE: CASE EVENT DATE: 20250420
